FAERS Safety Report 11536743 (Version 1)
Quarter: 2015Q3

REPORT INFORMATION
  Report Type: Spontaneous
  Country: IE (occurrence: IE)
  Receive Date: 20150922
  Receipt Date: 20150922
  Transmission Date: 20151125
  Serious: Yes (Other)
  Sender: FDA-Public Use
  Company Number: IE-TEVA-594644ACC

PATIENT
  Sex: Male

DRUGS (2)
  1. MONTELUKAST TEVA [Suspect]
     Active Substance: MONTELUKAST SODIUM
  2. DYMISTA [Concomitant]
     Active Substance: AZELASTINE HYDROCHLORIDE\FLUTICASONE PROPIONATE
     Dosage: NASAL SPRAY, SUSPENSION

REACTIONS (1)
  - Paraesthesia [Unknown]
